FAERS Safety Report 16020716 (Version 4)
Quarter: 2020Q2

REPORT INFORMATION
  Report Type: Report from Study
  Country: US (occurrence: US)
  Receive Date: 20190301
  Receipt Date: 20200618
  Transmission Date: 20200713
  Serious: Yes (Death, Other)
  Sender: FDA-Public Use
  Company Number: US-REGENERON PHARMACEUTICALS, INC.-2019-19125

PATIENT

DRUGS (2)
  1. EYLEA [Suspect]
     Active Substance: AFLIBERCEPT
     Indication: NEOVASCULAR AGE-RELATED MACULAR DEGENERATION
     Dosage: 2 MG, 0.05ML, Q4W, FOR THE FIRST 3 INJECTIONS
     Route: 031
     Dates: start: 20150708, end: 20170207
  2. EYLEA [Suspect]
     Active Substance: AFLIBERCEPT
     Indication: CHOROIDAL NEOVASCULARISATION
     Dosage: 2 MG, 0.05ML, Q8W
     Route: 031

REACTIONS (1)
  - Death [Fatal]

NARRATIVE: CASE EVENT DATE: 20170501
